FAERS Safety Report 8053049-4 (Version None)
Quarter: 2012Q1

REPORT INFORMATION
  Report Type: 
  Country: None (occurrence: None)
  Receive Date: 20120118
  Receipt Date: 20120109
  Transmission Date: 20120608
  Serious: Yes (Other)
  Sender: FDA-Public Use
  Company Number: US-NOVOPROD-342750

PATIENT
  Age: 11 Year
  Sex: Male
  Weight: 34.467 kg

DRUGS (1)
  1. NORDITROPIN FLEXPRO [Suspect]
     Indication: DWARFISM
     Dosage: 1 MG, QD
     Route: 058
     Dates: start: 20111212

REACTIONS (1)
  - HEPATIC ENZYME INCREASED [None]
